FAERS Safety Report 16963541 (Version 1)
Quarter: 2019Q4

REPORT INFORMATION
  Report Type: Spontaneous
  Country: CA (occurrence: CA)
  Receive Date: 20191025
  Receipt Date: 20191025
  Transmission Date: 20200122
  Serious: Yes (Disabling)
  Sender: FDA-Public Use
  Company Number: CA-TEVA-2019-CA-1126902

PATIENT
  Age: 68 Year
  Sex: Female
  Weight: 60 kg

DRUGS (2)
  1. APO-IMATINIB [Suspect]
     Active Substance: IMATINIB
     Dosage: 400 MILLIGRAM DAILY;
     Route: 048
  2. TEVA-IMATINIB [Suspect]
     Active Substance: IMATINIB
     Indication: CHRONIC MYELOID LEUKAEMIA
     Dosage: 400 MILLIGRAM DAILY;
     Route: 048

REACTIONS (2)
  - Arthralgia [Recovered/Resolved]
  - Product substitution issue [Recovered/Resolved]
